FAERS Safety Report 16269189 (Version 1)
Quarter: 2019Q2

REPORT INFORMATION
  Report Type: Report from Study
  Country: US (occurrence: US)
  Receive Date: 20190503
  Receipt Date: 20190503
  Transmission Date: 20190711
  Serious: Yes (Other)
  Sender: FDA-Public Use
  Company Number: US-UCBSA-2019018653

PATIENT
  Sex: Female

DRUGS (2)
  1. ROTIGOTINE [Suspect]
     Active Substance: ROTIGOTINE
     Indication: PARKINSON^S DISEASE
     Dosage: 4 MILLIGRAM, ONCE DAILY (QD)
  2. CARBIDOPA AND LEVODOPA [Concomitant]
     Active Substance: CARBIDOPA\LEVODOPA
     Indication: PRODUCT USED FOR UNKNOWN INDICATION
     Dosage: UNK

REACTIONS (10)
  - Respiratory disorder [Unknown]
  - Herpes zoster oticus [Unknown]
  - Cataract [Unknown]
  - Breast cancer [Unknown]
  - Sleep disorder [Unknown]
  - Bipolar disorder [Unknown]
  - Osteoporosis [Unknown]
  - Anaemia [Unknown]
  - Pituitary enlargement [Unknown]
  - Pain in extremity [Unknown]
